FAERS Safety Report 10048530 (Version 2)
Quarter: 2014Q2

REPORT INFORMATION
  Report Type: Report from Study
  Country: BR (occurrence: BR)
  Receive Date: 20140331
  Receipt Date: 20140424
  Transmission Date: 20141212
  Serious: Yes (Hospitalization)
  Sender: FDA-Public Use
  Company Number: PHHY2014BR037991

PATIENT
  Age: 50 Year
  Sex: Male
  Weight: 77.2 kg

DRUGS (12)
  1. NEORAL [Suspect]
     Indication: RENAL TRANSPLANT
     Dosage: 75 MG, 2 PER DAY
     Route: 048
     Dates: start: 20091008
  2. NEORAL [Suspect]
     Indication: IMMUNOSUPPRESSION
  3. PREDNISONE [Suspect]
     Indication: RENAL TRANSPLANT
     Dosage: 5 MG, SINGLE
     Route: 048
     Dates: start: 20081231
  4. PREDNISONE [Suspect]
     Indication: IMMUNOSUPPRESSION
  5. MYCOPHENOLATE [Suspect]
     Indication: RENAL TRANSPLANT
     Dosage: 720 MG,2 PER DAY
     Route: 048
     Dates: start: 20081005
  6. MYCOPHENOLATE [Suspect]
     Indication: IMMUNOSUPPRESSION
  7. AMLODIPINE [Concomitant]
     Indication: HYPERTENSION
     Dosage: UNK UKN, UNK
     Dates: start: 20090305
  8. ACETYLSALICYLIC ACID [Concomitant]
     Indication: THROMBOSIS PROPHYLAXIS
     Dosage: UNK UKN, UNK
     Dates: start: 20081006
  9. OMEPRAZOLE [Concomitant]
     Indication: PEPTIC ULCER
     Dosage: UNK UKN, UNK
     Dates: start: 20081028
  10. SULFAMETHOXAZOLE W/TRIMETHOPRIM [Concomitant]
     Indication: BRONCHOPNEUMONIA
     Dosage: UNK UKN, UNK
     Dates: start: 20120927
  11. GLIFAGE [Concomitant]
     Indication: DIABETES MELLITUS
     Dosage: UNK UKN, UNK
     Dates: start: 20121213
  12. NPH INSULIN [Concomitant]
     Indication: DIABETES MELLITUS
     Dosage: UNK UKN, UNK
     Dates: start: 20101217

REACTIONS (14)
  - Pseudarthrosis [Not Recovered/Not Resolved]
  - Joint injury [Recovered/Resolved]
  - Road traffic accident [Not Recovered/Not Resolved]
  - Limb injury [Not Recovered/Not Resolved]
  - Arthritis [Not Recovered/Not Resolved]
  - Wound complication [Not Recovered/Not Resolved]
  - Hyperaemia [Not Recovered/Not Resolved]
  - Wound secretion [Not Recovered/Not Resolved]
  - Dysstasia [Not Recovered/Not Resolved]
  - Postoperative wound infection [Recovered/Resolved]
  - Arthritis bacterial [Not Recovered/Not Resolved]
  - Arthralgia [Not Recovered/Not Resolved]
  - Pyrexia [Not Recovered/Not Resolved]
  - Skin infection [Not Recovered/Not Resolved]
